FAERS Safety Report 17797294 (Version 6)
Quarter: 2021Q2

REPORT INFORMATION
  Report Type: Spontaneous
  Country: US (occurrence: US)
  Receive Date: 20200518
  Receipt Date: 20210512
  Transmission Date: 20210716
  Serious: No
  Sender: FDA-Public Use
  Company Number: US-BIOGEN-2020BI00874648

PATIENT
  Age: 36 Year
  Sex: Male

DRUGS (3)
  1. TECFIDERA [Suspect]
     Active Substance: DIMETHYL FUMARATE
     Route: 065
     Dates: start: 20200519
  2. LYRICA [Concomitant]
     Active Substance: PREGABALIN
     Route: 065
  3. TECFIDERA [Suspect]
     Active Substance: DIMETHYL FUMARATE
     Indication: MULTIPLE SCLEROSIS
     Route: 065
     Dates: start: 20200512, end: 20200518

REACTIONS (6)
  - Hot flush [Unknown]
  - Somnolence [Not Recovered/Not Resolved]
  - Headache [Unknown]
  - Multiple allergies [Unknown]
  - Hyperhidrosis [Unknown]
  - Flushing [Not Recovered/Not Resolved]

NARRATIVE: CASE EVENT DATE: 20200512
